FAERS Safety Report 10562368 (Version 2)
Quarter: 2014Q4

REPORT INFORMATION
  Report Type: Spontaneous
  Country: IT (occurrence: IT)
  Receive Date: 20141104
  Receipt Date: 20141113
  Transmission Date: 20150529
  Serious: Yes (Other)
  Sender: FDA-Public Use
  Company Number: PHHY2014IT143110

PATIENT
  Age: 35 Year
  Sex: Female

DRUGS (1)
  1. DICLOFENAC [Suspect]
     Active Substance: DICLOFENAC
     Indication: PRODUCT USED FOR UNKNOWN INDICATION
     Route: 065

REACTIONS (7)
  - Hepatic function abnormal [Unknown]
  - Lymphadenopathy [Unknown]
  - Skin lesion [Unknown]
  - Erythema multiforme [Unknown]
  - Dermatitis exfoliative [Unknown]
  - Eosinophilia [Unknown]
  - Drug reaction with eosinophilia and systemic symptoms [Unknown]
